FAERS Safety Report 16025114 (Version 2)
Quarter: 2019Q3

REPORT INFORMATION
  Report Type: Spontaneous
  Country: US (occurrence: US)
  Receive Date: 20190301
  Receipt Date: 20190711
  Transmission Date: 20191004
  Serious: No
  Sender: FDA-Public Use
  Company Number: US-SA-2019SA056063

PATIENT
  Age: 22 Year
  Sex: Male

DRUGS (1)
  1. DUPIXENT [Suspect]
     Active Substance: DUPILUMAB
     Indication: DERMATITIS ATOPIC
     Dosage: 300 MG, QOW
     Route: 058
     Dates: start: 20190123

REACTIONS (4)
  - Product dose omission [Unknown]
  - Skin exfoliation [Unknown]
  - Injection site mass [Unknown]
  - Eczema [Unknown]

NARRATIVE: CASE EVENT DATE: 2019
